FAERS Safety Report 5521563-9 (Version None)
Quarter: 2007Q4

REPORT INFORMATION
  Report Type: 
  Country: None (occurrence: None)
  Receive Date: 20071115
  Receipt Date: 20071106
  Transmission Date: 20080405
  Serious: Yes (Other)
  Sender: FDA-Public Use
  Company Number: SPV1-2007-04865

PATIENT
  Age: 56 Year
  Sex: Male

DRUGS (2)
  1. ANAGRELIDE HYDROCHLORIDE [Suspect]
     Indication: ESSENTIAL THROMBOCYTHAEMIA
     Dosage: 1 MG DAILY, } 1 MG DAILY
  2. ASPIRIN [Concomitant]

REACTIONS (1)
  - PERIPHERAL ISCHAEMIA [None]
